FAERS Safety Report 10022786 (Version 2)
Quarter: 2015Q1

REPORT INFORMATION
  Report Type: Spontaneous
  Country: SE (occurrence: SE)
  Receive Date: 20140319
  Receipt Date: 20150331
  Transmission Date: 20150720
  Serious: Yes (Other)
  Sender: FDA-Public Use
  Company Number: SE-PFIZER INC-2014075703

PATIENT
  Age: 38 Year
  Sex: Male

DRUGS (2)
  1. BENZYLPENICILLIN [Concomitant]
     Active Substance: PENICILLIN G
     Dosage: 3 G, UNK
  2. DALACIN [Suspect]
     Active Substance: CLINDAMYCIN\CLINDAMYCIN PHOSPHATE
     Indication: LUNG ABSCESS
     Dosage: 600 MG, UNK
     Route: 041
     Dates: start: 201402, end: 201402

REACTIONS (3)
  - Headache [Unknown]
  - Adverse drug reaction [Unknown]
  - Discomfort [Unknown]

NARRATIVE: CASE EVENT DATE: 201402
